FAERS Safety Report 7867324-7 (Version None)
Quarter: 2011Q4

REPORT INFORMATION
  Report Type: 
  Country: None (occurrence: None)
  Receive Date: 20111028
  Receipt Date: 20111021
  Transmission Date: 20120403
  Serious: Yes (Hospitalization)
  Sender: FDA-Public Use
  Company Number: US-BRISTOL-MYERS SQUIBB COMPANY-14031264

PATIENT
  Age: 52 Year
  Sex: Male
  Weight: 84 kg

DRUGS (2)
  1. ERBITUX [Suspect]
     Indication: HEAD AND NECK CANCER
     Route: 042
     Dates: start: 20071113, end: 20071218
  2. CISPLATIN [Suspect]
     Indication: HEAD AND NECK CANCER
     Route: 042
     Dates: start: 20071113

REACTIONS (1)
  - RECALL PHENOMENON [None]
